FAERS Safety Report 6285262-0 (Version None)
Quarter: 2009Q3

REPORT INFORMATION
  Report Type: 
  Country: None (occurrence: None)
  Receive Date: 20090727
  Receipt Date: 20090720
  Transmission Date: 20100115
  Serious: No
  Sender: FDA-Public Use
  Company Number: US-JNJFOC-20090707212

PATIENT
  Sex: Female
  Weight: 61.24 kg

DRUGS (5)
  1. DURAGESIC-100 [Suspect]
     Indication: PAIN
     Route: 062
  2. LYRICA [Concomitant]
     Indication: PAIN
     Route: 048
  3. TIZANIDINE HCL [Concomitant]
     Indication: MUSCLE DISORDER
     Route: 048
  4. ALPRAZOLAM [Concomitant]
     Indication: ANXIETY
     Route: 048
  5. EFFEXOR XR [Concomitant]
     Indication: DEPRESSION
     Route: 048

REACTIONS (2)
  - PAIN [None]
  - WRONG TECHNIQUE IN DRUG USAGE PROCESS [None]
